FAERS Safety Report 15207323 (Version 2)
Quarter: 2018Q3

REPORT INFORMATION
  Report Type: Spontaneous
  Country: DE (occurrence: DE)
  Receive Date: 20180727
  Receipt Date: 20180807
  Transmission Date: 20181010
  Serious: Yes (Hospitalization, Disabling, Other)
  Sender: FDA-Public Use
  Company Number: DE-PFIZER INC-2018300004

PATIENT
  Age: 62 Year
  Sex: Male

DRUGS (22)
  1. MONO?EMBOLEX [Concomitant]
     Active Substance: CERTOPARIN SODIUM
     Dosage: UNK
  2. SIMVASTATIN. [Concomitant]
     Active Substance: SIMVASTATIN
     Dosage: UNK
     Dates: start: 20101016
  3. PANTOPRAZOLE [Concomitant]
     Active Substance: PANTOPRAZOLE
     Dosage: UNK
  4. AMIODARONE HCL [Suspect]
     Active Substance: AMIODARONE HYDROCHLORIDE
     Dosage: UNK UNK, UNKNOWN FREQ.
     Route: 065
  5. PROGRAF [Suspect]
     Active Substance: TACROLIMUS\TACROLIMUS ANHYDROUS
     Indication: RENAL TRANSPLANT
     Dosage: UNK, 2X/DAY (2?0?1.5 MG)
     Route: 048
     Dates: start: 201007
  6. MICARDIS [Concomitant]
     Active Substance: TELMISARTAN
     Dosage: UNK
  7. CORDAREX [Concomitant]
     Active Substance: AMIODARONE
     Dosage: UNK
  8. DECOSTRIOL [Concomitant]
     Active Substance: CALCITRIOL
     Dosage: UNK
  9. FOLSAEURE [Concomitant]
     Active Substance: FOLIC ACID
     Dosage: UNK
  10. CALCITRIOL. [Concomitant]
     Active Substance: CALCITRIOL
     Dosage: UNK
  11. L?THYROXIN HENNING [Concomitant]
     Active Substance: LEVOTHYROXINE SODIUM
     Dosage: UNK
  12. LAXOBERAL [Concomitant]
     Active Substance: SODIUM PICOSULFATE
     Dosage: UNK
  13. MYFORTIC [Concomitant]
     Active Substance: MYCOPHENOLATE SODIUM
     Dosage: UNK
  14. VALCYTE [Concomitant]
     Active Substance: VALGANCICLOVIR HYDROCHLORIDE
     Dosage: UNK
  15. PROGRAF [Suspect]
     Active Substance: TACROLIMUS\TACROLIMUS ANHYDROUS
     Dosage: UNK UNK, 2X/DAY (1MG?0?0.5MG)
     Route: 048
     Dates: start: 201010, end: 201012
  16. 9 VITAMINEKOMPLEX [Concomitant]
     Dosage: UNK
  17. URBASON [Concomitant]
     Active Substance: METHYLPREDNISOLONE
     Dosage: UNK
  18. PROGRAF [Suspect]
     Active Substance: TACROLIMUS\TACROLIMUS ANHYDROUS
     Dosage: UNK, 2X/DAY (2?0?1.5 MG)
     Route: 048
     Dates: start: 201009
  19. IMUREK [Concomitant]
     Active Substance: AZATHIOPRINE
     Dosage: UNK
  20. BISOPROLOL HEMIFUMARATE [Concomitant]
     Active Substance: BISOPROLOL FUMARATE
     Dosage: UNK
  21. MARCUMAR [Concomitant]
     Active Substance: PHENPROCOUMON
     Dosage: UNK
  22. ROCALTROL [Concomitant]
     Active Substance: CALCITRIOL
     Dosage: UNK

REACTIONS (4)
  - Movement disorder [Unknown]
  - Constipation [Unknown]
  - Optic atrophy [Not Recovered/Not Resolved]
  - Immunosuppressant drug level increased [Recovered/Resolved]

NARRATIVE: CASE EVENT DATE: 20100824
